FAERS Safety Report 8462888-7 (Version None)
Quarter: 2012Q2

REPORT INFORMATION
  Report Type: 
  Country: None (occurrence: None)
  Receive Date: 20120625
  Receipt Date: 20120618
  Transmission Date: 20120825
  Serious: Yes (Other)
  Sender: FDA-Public Use
  Company Number: US-PFIZER INC-2010082148

PATIENT
  Sex: Male
  Weight: 132 kg

DRUGS (12)
  1. LIPITOR [Concomitant]
     Indication: BLOOD CHOLESTEROL ABNORMAL
     Dosage: 10 MG, 1X/DAY
     Route: 048
  2. ACETYLSALICYLIC ACID [Concomitant]
     Indication: THROMBOSIS PROPHYLAXIS
     Dosage: 80 MG, 1X/DAY
     Route: 048
  3. ACTOS [Concomitant]
     Indication: DIABETES MELLITUS
     Dosage: 45 MG, 1X/DAY
     Route: 048
  4. TOPROL-XL [Concomitant]
     Indication: HYPERTENSION
     Dosage: UNK MG, 1X/DAY
     Route: 048
  5. HYDROCHLOROTHIAZIDE [Concomitant]
     Dosage: 25 MG, 1X/DAY
     Route: 048
  6. SUTENT [Suspect]
     Indication: RENAL CELL CARCINOMA
     Dosage: 50 MG, 1X/DAY
     Route: 048
     Dates: start: 20100624
  7. SUTENT [Suspect]
     Dosage: 50 MG, UNK
     Dates: start: 20101201
  8. LASIX [Concomitant]
     Indication: FLUID RETENTION
     Dosage: 12.5 MG, UNK
     Route: 048
  9. SUTENT [Suspect]
     Dosage: 37.5 MG, UNK
     Dates: start: 20120518
  10. CLINORIL [Concomitant]
     Dosage: 200 MG, 2X/DAY
     Route: 048
  11. ZOLOFT [Concomitant]
     Indication: DEPRESSION
     Dosage: 50 MG, 1X/DAY
     Route: 048
  12. COMPAZINE [Concomitant]

REACTIONS (19)
  - DIARRHOEA [None]
  - CHEST PAIN [None]
  - VOMITING [None]
  - BLOOD CREATININE INCREASED [None]
  - GLOMERULAR FILTRATION RATE DECREASED [None]
  - NAUSEA [None]
  - HAEMORRHOIDAL HAEMORRHAGE [None]
  - DUODENAL ULCER HAEMORRHAGE [None]
  - BLOOD UREA INCREASED [None]
  - FATIGUE [None]
  - SKIN FISSURES [None]
  - BLOOD MAGNESIUM DECREASED [None]
  - BLOOD LACTATE DEHYDROGENASE INCREASED [None]
  - WEIGHT DECREASED [None]
  - HEADACHE [None]
  - BLOOD GLUCOSE ABNORMAL [None]
  - PLATELET COUNT DECREASED [None]
  - URINE PROTEIN/CREATININE RATIO INCREASED [None]
  - CONFUSIONAL STATE [None]
